FAERS Safety Report 23888508 (Version 2)
Quarter: 2025Q3

REPORT INFORMATION
  Report Type: Report from Study
  Country: EU (occurrence: EU)
  Receive Date: 20240523
  Receipt Date: 20250707
  Transmission Date: 20251021
  Serious: No
  Sender: MERCK SHARP & DOHME LLC
  Company Number: EU-009507513-2405POL004678

PATIENT
  Age: 10 Year
  Sex: Male

DRUGS (2)
  1. MOLNUPIRAVIR [Suspect]
     Active Substance: MOLNUPIRAVIR
     Indication: COVID-19 treatment
     Route: 048
  2. EVUSHELD [Concomitant]
     Active Substance: CILGAVIMAB\TIXAGEVIMAB
     Indication: COVID-19
     Route: 030

REACTIONS (1)
  - Product administered to patient of inappropriate age [Unknown]
